FAERS Safety Report 5420999-4 (Version None)
Quarter: 2007Q3

REPORT INFORMATION
  Report Type: 
  Country: None (occurrence: None)
  Receive Date: 20070821
  Receipt Date: 20070819
  Transmission Date: 20080115
  Serious: Yes (Other)
  Sender: FDA-Public Use
  Company Number: A0661159A

PATIENT
  Age: 33 Year
  Sex: Female

DRUGS (1)
  1. ALLI [Suspect]
     Route: 065
     Dates: start: 20070628, end: 20070702

REACTIONS (3)
  - ABDOMINAL PAIN UPPER [None]
  - FAECAL INCONTINENCE [None]
  - PHARMACEUTICAL PRODUCT COMPLAINT [None]
